FAERS Safety Report 25516869 (Version 1)
Quarter: 2025Q3

REPORT INFORMATION
  Report Type: Spontaneous
  Country: US (occurrence: US)
  Receive Date: 20250704
  Receipt Date: 20250704
  Transmission Date: 20251021
  Serious: No
  Sender: RADIUS PHARM
  Company Number: US-RADIUS HEALTH INC.-US-RADIUS-25046076

PATIENT
  Age: 87 Year
  Sex: Female

DRUGS (5)
  1. TYMLOS [Suspect]
     Active Substance: ABALOPARATIDE
     Indication: Osteoporosis
     Dosage: 80 MICROGRAM, QD
     Route: 058
     Dates: end: 20250311
  2. ASPIRIN [Concomitant]
     Active Substance: ASPIRIN
     Indication: Product used for unknown indication
  3. SIMVASTATIN [Concomitant]
     Active Substance: SIMVASTATIN
     Indication: Product used for unknown indication
  4. LEVOTHYROXINE [Concomitant]
     Active Substance: LEVOTHYROXINE
     Indication: Product used for unknown indication
  5. VALSARTAN [Concomitant]
     Active Substance: VALSARTAN
     Indication: Product used for unknown indication

REACTIONS (15)
  - Abdominal discomfort [Recovered/Resolved]
  - Feeling abnormal [Unknown]
  - Fatigue [Unknown]
  - Weight decreased [Unknown]
  - Decreased appetite [Unknown]
  - Vertigo [Unknown]
  - Headache [Unknown]
  - Back pain [Unknown]
  - Arthralgia [Unknown]
  - Diarrhoea [Unknown]
  - Muscular weakness [Recovered/Resolved]
  - Limb discomfort [Unknown]
  - Balance disorder [Not Recovered/Not Resolved]
  - Heart rate increased [Unknown]
  - Blood pressure increased [Unknown]

NARRATIVE: CASE EVENT DATE: 20250312
